FAERS Safety Report 5642507-5 (Version None)
Quarter: 2008Q1

REPORT INFORMATION
  Report Type: 
  Country: None (occurrence: None)
  Receive Date: 20080227
  Receipt Date: 20080227
  Transmission Date: 20080703
  Serious: Yes (Other)
  Sender: FDA-Public Use
  Company Number: None

PATIENT
  Age: 56 Year
  Sex: Female

DRUGS (5)
  1. FOSAMAX [Suspect]
     Indication: OSTEOPOROSIS
     Dosage: 1999  10MG DAILY  ; 2000-05  70 MG WEEKLY
     Dates: start: 19990101, end: 20051201
  2. ACTONEL [Suspect]
     Dates: start: 20051201, end: 20060701
  3. ZETIA [Concomitant]
  4. MYSOLINE [Concomitant]
  5. ASPIRIN [Concomitant]

REACTIONS (1)
  - OSTEONECROSIS [None]
